FAERS Safety Report 25574823 (Version 1)
Quarter: 2025Q3

REPORT INFORMATION
  Report Type: Spontaneous
  Country: EU (occurrence: EU)
  Receive Date: 20250718
  Receipt Date: 20250718
  Transmission Date: 20251020
  Serious: Yes (Other)
  Sender: NOVARTIS
  Company Number: None

PATIENT
  Age: 85 Year
  Sex: Female
  Weight: 44 kg

DRUGS (5)
  1. LUTATHERA [Suspect]
     Active Substance: LUTETIUM OXODOTREOTIDE LU-177
     Indication: Meningioma
     Route: 042
     Dates: start: 20220505, end: 20220505
  2. LUTATHERA [Suspect]
     Active Substance: LUTETIUM OXODOTREOTIDE LU-177
     Route: 042
     Dates: start: 20220630, end: 20220630
  3. EZETIMIBE [Concomitant]
     Active Substance: EZETIMIBE
     Indication: Dyslipidaemia
     Dosage: 10 MG, QD (0-0-1)
     Route: 048
  4. BETAHISTINE [Concomitant]
     Active Substance: BETAHISTINE
     Indication: Vertigo
     Dosage: 24 MG, Q12H (1-0-1)
     Route: 048
  5. ACETYLLEUCINE [Concomitant]
     Active Substance: ACETYLLEUCINE
     Indication: Vertigo
     Dosage: 500 MG, Q6H
     Route: 048

REACTIONS (2)
  - Weight decreased [Recovered/Resolved]
  - Condition aggravated [Recovered/Resolved]

NARRATIVE: CASE EVENT DATE: 20220729
